FAERS Safety Report 8156285-1 (Version None)
Quarter: 2012Q1

REPORT INFORMATION
  Report Type: 
  Country: None (occurrence: None)
  Receive Date: 20120222
  Receipt Date: 20120215
  Transmission Date: 20120608
  Serious: Yes (Death, Life-Threatening, Hospitalization)
  Sender: FDA-Public Use
  Company Number: CA-BAYER-2012-015287

PATIENT
  Age: 23 Year
  Sex: Female

DRUGS (2)
  1. AVELOX [Suspect]
     Dosage: 400 MG, QD
     Route: 048
  2. ALESSE [Concomitant]
     Route: 048

REACTIONS (8)
  - HEPATIC NECROSIS [None]
  - HEPATITIS ACUTE [None]
  - LYMPHADENOPATHY [None]
  - RENAL FAILURE ACUTE [None]
  - CHOLELITHIASIS [None]
  - HYPOTENSION [None]
  - HEPATIC FAILURE [None]
  - TOXIC EPIDERMAL NECROLYSIS [None]
